FAERS Safety Report 7055834-4 (Version None)
Quarter: 2010Q4

REPORT INFORMATION
  Report Type: 
  Country: None (occurrence: None)
  Receive Date: 20101021
  Receipt Date: 20100927
  Transmission Date: 20110411
  Serious: No
  Sender: FDA-Public Use
  Company Number: US-JNJFOC-20100908178

PATIENT
  Sex: Female
  Weight: 97.07 kg

DRUGS (8)
  1. INVEGA SUSTENNA [Suspect]
     Indication: SCHIZOPHRENIA
     Route: 030
  2. CELEXA [Concomitant]
  3. TRAZODONE [Concomitant]
  4. VITAMIN TAB [Concomitant]
  5. NASACORT [Concomitant]
     Indication: MULTIPLE ALLERGIES
  6. ADVAIR DISKUS 100/50 [Concomitant]
     Indication: MULTIPLE ALLERGIES
  7. RANITIDINE [Concomitant]
     Indication: GASTRIC DISORDER
  8. BENADRYL [Concomitant]
     Indication: MULTIPLE ALLERGIES

REACTIONS (2)
  - INJECTION SITE EXTRAVASATION [None]
  - INJECTION SITE NODULE [None]
